FAERS Safety Report 20482655 (Version 1)
Quarter: 2022Q1

REPORT INFORMATION
  Report Type: Spontaneous
  Country: JP (occurrence: JP)
  Receive Date: 20220217
  Receipt Date: 20220217
  Transmission Date: 20220423
  Serious: Yes (Other)
  Sender: FDA-Public Use
  Company Number: JP-MLMSERVICE-20220202-3350031-1

PATIENT
  Age: 61 Year
  Sex: Male

DRUGS (2)
  1. CISPLATIN [Suspect]
     Active Substance: CISPLATIN
     Indication: Pulmonary tumour thrombotic microangiopathy
     Dosage: LOW DOSE
  2. FLUOROURACIL [Suspect]
     Active Substance: FLUOROURACIL
     Indication: Pulmonary tumour thrombotic microangiopathy
     Dosage: LOW DOSE

REACTIONS (3)
  - Anaemia [Unknown]
  - Hepatic enzyme increased [Unknown]
  - Thrombocytopenia [Unknown]
